FAERS Safety Report 8371405-1 (Version None)
Quarter: 2012Q2

REPORT INFORMATION
  Report Type: 
  Country: None (occurrence: None)
  Receive Date: 20120518
  Receipt Date: 20120514
  Transmission Date: 20120825
  Serious: Yes (Death)
  Sender: FDA-Public Use
  Company Number: US-ASTRAZENECA-2012SE30603

PATIENT
  Age: 18952 Day
  Sex: Male
  Weight: 117.9 kg

DRUGS (2)
  1. SEROQUEL [Suspect]
     Indication: BIPOLAR DISORDER
     Route: 048
     Dates: start: 19990101
  2. SEROQUEL [Suspect]
     Indication: SCHIZOPHRENIA
     Route: 048
     Dates: start: 19990101

REACTIONS (5)
  - INTENTIONAL DRUG MISUSE [None]
  - DEATH [None]
  - WEIGHT INCREASED [None]
  - DEHYDRATION [None]
  - RESTLESSNESS [None]
